FAERS Safety Report 14841386 (Version 30)
Quarter: 2022Q1

REPORT INFORMATION
  Report Type: Other
  Country: GB (occurrence: GB)
  Receive Date: 20180503
  Receipt Date: 20220328
  Transmission Date: 20220423
  Serious: Yes (Hospitalization, Other)
  Sender: FDA-Public Use
  Company Number: None

PATIENT
  Age: 35 Year
  Sex: Female

DRUGS (41)
  1. SERTRALINE [Suspect]
     Active Substance: SERTRALINE HYDROCHLORIDE
     Indication: Schizophrenia
     Dosage: 100 MILLIGRAM
     Route: 065
  2. SERTRALINE [Suspect]
     Active Substance: SERTRALINE HYDROCHLORIDE
     Dosage: 150 MILLIGRAM
     Route: 065
  3. SERTRALINE [Suspect]
     Active Substance: SERTRALINE HYDROCHLORIDE
     Dosage: 50 MILLIGRAM
     Route: 065
  4. SERTRALINE [Suspect]
     Active Substance: SERTRALINE HYDROCHLORIDE
     Dosage: UNK
  5. SERTRALINE [Suspect]
     Active Substance: SERTRALINE HYDROCHLORIDE
     Dosage: 100 MILLIGRAM
     Route: 065
  6. SERTRALINE [Suspect]
     Active Substance: SERTRALINE HYDROCHLORIDE
     Dosage: 150 MILLIGRAM
     Route: 065
  7. SERTRALINE [Suspect]
     Active Substance: SERTRALINE HYDROCHLORIDE
     Dosage: 50 MILLIGRAM
     Route: 065
  8. OMEPRAZOLE SODIUM [Suspect]
     Active Substance: OMEPRAZOLE SODIUM
     Indication: Schizophrenia
     Dosage: UNK
     Route: 065
  9. OMEPRAZOLE SODIUM [Suspect]
     Active Substance: OMEPRAZOLE SODIUM
     Dosage: 3 MILLIGRAM
     Route: 065
  10. OMEPRAZOLE SODIUM [Suspect]
     Active Substance: OMEPRAZOLE SODIUM
     Dosage: 3 MILLIGRAM
     Route: 065
  11. OMEPRAZOLE SODIUM [Suspect]
     Active Substance: OMEPRAZOLE SODIUM
     Dosage: UNK
     Route: 065
  12. OMEPRAZOLE SODIUM [Suspect]
     Active Substance: OMEPRAZOLE SODIUM
     Dosage: 3 MILLIGRAM
     Route: 065
  13. OMEPRAZOLE SODIUM [Suspect]
     Active Substance: OMEPRAZOLE SODIUM
     Dosage: 3 MILLIGRAM
     Route: 065
  14. OMEPRAZOLE SODIUM [Suspect]
     Active Substance: OMEPRAZOLE SODIUM
     Dosage: 5 MILLIGRAM
     Route: 065
  15. OLANZAPINE [Suspect]
     Active Substance: OLANZAPINE
     Indication: Schizophrenia
     Dosage: 5 MILLIGRAM
     Route: 065
  16. OLANZAPINE [Suspect]
     Active Substance: OLANZAPINE
     Dosage: 10 MILLIGRAM  (ORODISPERSIBLE TABLET)
     Route: 065
  17. OLANZAPINE [Suspect]
     Active Substance: OLANZAPINE
     Dosage: 15 MILLIGRAM (ORODISPERSIBLE TABLET)
     Route: 065
  18. OLANZAPINE [Suspect]
     Active Substance: OLANZAPINE
     Dosage: 5 MILLIGRAM (ORODISPERSIBLE TABLET)
     Route: 065
  19. OLANZAPINE [Suspect]
     Active Substance: OLANZAPINE
     Dosage: 10 MILLIGRAM
     Route: 065
  20. OLANZAPINE [Suspect]
     Active Substance: OLANZAPINE
     Dosage: UNK
     Route: 065
  21. OLANZAPINE [Suspect]
     Active Substance: OLANZAPINE
     Dosage: 5 MILLIGRAM (ORODISPERSIBLE TABLET)
     Route: 065
  22. OLANZAPINE [Suspect]
     Active Substance: OLANZAPINE
     Dosage: 15 MILLIGRAM (ORODISPERSIBLE TABLET)
     Route: 065
  23. OLANZAPINE [Suspect]
     Active Substance: OLANZAPINE
     Dosage: 10 MILLIGRAM  (ORODISPERSIBLE TABLET)
     Route: 065
  24. OLANZAPINE [Suspect]
     Active Substance: OLANZAPINE
     Dosage: 15 MILLIGRAM (ORODISPERSIBLE TABLET)
     Route: 065
  25. DIAZEPAM [Suspect]
     Active Substance: DIAZEPAM
     Indication: Schizophrenia
     Dosage: 5 MILLIGRAM
     Route: 065
  26. DIAZEPAM [Suspect]
     Active Substance: DIAZEPAM
     Dosage: 15 MILLIGRAM
     Route: 065
  27. DIAZEPAM [Suspect]
     Active Substance: DIAZEPAM
     Dosage: UNK
     Route: 065
  28. DIAZEPAM [Suspect]
     Active Substance: DIAZEPAM
     Dosage: 5 MILLIGRAM
     Route: 065
  29. DIAZEPAM [Suspect]
     Active Substance: DIAZEPAM
     Dosage: 5 MILLIGRAM
     Route: 065
  30. DIAZEPAM [Suspect]
     Active Substance: DIAZEPAM
     Dosage: 15 MILLIGRAM
     Route: 065
  31. RISPERDAL [Suspect]
     Active Substance: RISPERIDONE
     Indication: Schizophrenia
     Dosage: 3 MILLIGRAM
     Route: 048
  32. RISPERDAL [Suspect]
     Active Substance: RISPERIDONE
     Dosage: 3 MILLIGRAM
     Route: 048
  33. RISPERDAL [Suspect]
     Active Substance: RISPERIDONE
     Dosage: 3 MILLIGRAM
     Route: 048
  34. RISPERDAL [Suspect]
     Active Substance: RISPERIDONE
     Dosage: 3 MILLIGRAM (GRANULES)
     Route: 048
  35. ARIPIPRAZOLE [Suspect]
     Active Substance: ARIPIPRAZOLE
     Indication: Schizophrenia
     Dosage: 10 MILLIGRAM
     Route: 065
  36. ARIPIPRAZOLE [Suspect]
     Active Substance: ARIPIPRAZOLE
     Dosage: 5 MILLIGRAM
     Route: 065
  37. ARIPIPRAZOLE [Suspect]
     Active Substance: ARIPIPRAZOLE
     Dosage: 5 MILLIGRAM
     Route: 065
  38. ARIPIPRAZOLE [Suspect]
     Active Substance: ARIPIPRAZOLE
     Dosage: 5 MILLIGRAM
     Route: 065
  39. ARIPIPRAZOLE [Suspect]
     Active Substance: ARIPIPRAZOLE
     Dosage: 5 MILLIGRAM
     Route: 065
  40. ARIPIPRAZOLE [Suspect]
     Active Substance: ARIPIPRAZOLE
     Dosage: 10 MILLIGRAM
     Route: 065
  41. ARIPIPRAZOLE [Suspect]
     Active Substance: ARIPIPRAZOLE
     Dosage: 5 MILLIGRAM
     Route: 065

REACTIONS (8)
  - Sepsis [Unknown]
  - Schizophrenia [Unknown]
  - Disease recurrence [Unknown]
  - Social avoidant behaviour [Unknown]
  - Dehydration [Unknown]
  - Treatment noncompliance [Unknown]
  - Drug ineffective for unapproved indication [Unknown]
  - Off label use [Unknown]
